FAERS Safety Report 8234074-7 (Version None)
Quarter: 2012Q1

REPORT INFORMATION
  Report Type: 
  Country: None (occurrence: None)
  Receive Date: 20120326
  Receipt Date: 20120326
  Transmission Date: 20120608
  Serious: Yes (Life-Threatening, Hospitalization, Other)
  Sender: FDA-Public Use
  Company Number: None

PATIENT
  Age: 29 Year
  Sex: Female
  Weight: 61.234 kg

DRUGS (2)
  1. GABAPENTIN [Suspect]
     Indication: NEURALGIA
     Dosage: 300MG
     Route: 048
     Dates: start: 20120210, end: 20120323
  2. GABAPENTIN [Suspect]
     Indication: EHLERS-DANLOS SYNDROME
     Dosage: 300MG
     Route: 048
     Dates: start: 20120210, end: 20120323

REACTIONS (9)
  - FALL [None]
  - CRYING [None]
  - ANGER [None]
  - FATIGUE [None]
  - SOMNAMBULISM [None]
  - HYPERSENSITIVITY [None]
  - AGITATION [None]
  - CLUMSINESS [None]
  - FLUSHING [None]
